FAERS Safety Report 12267196 (Version 1)
Quarter: 2016Q2

REPORT INFORMATION
  Report Type: Report from Study
  Country: US (occurrence: US)
  Receive Date: 20160414
  Receipt Date: 20160414
  Transmission Date: 20160815
  Serious: Yes (Other)
  Sender: FDA-Public Use
  Company Number: US-PFIZER INC-2016197590

PATIENT
  Sex: Female
  Weight: 1.86 kg

DRUGS (4)
  1. TETRACYCLINE HCL [Suspect]
     Active Substance: TETRACYCLINE HYDROCHLORIDE
     Dosage: 2 G, DAILY
     Route: 064
     Dates: start: 19620628, end: 19620628
  2. TETRACYCLINE HCL [Suspect]
     Active Substance: TETRACYCLINE HYDROCHLORIDE
     Indication: PYELONEPHRITIS
     Dosage: 4 G, DAILY
     Route: 064
     Dates: start: 19620627, end: 19620627
  3. TETRACYCLINE HCL [Concomitant]
     Active Substance: TETRACYCLINE HYDROCHLORIDE
     Indication: PYELONEPHRITIS
     Dosage: 3 G, DAILY
     Route: 064
     Dates: start: 19620628, end: 19620628
  4. TETRACYCLINE HCL [Concomitant]
     Active Substance: TETRACYCLINE HYDROCHLORIDE
     Dosage: UNK
     Route: 064
     Dates: start: 19620629

REACTIONS (2)
  - Maternal exposure during pregnancy [Unknown]
  - Premature baby [Unknown]

NARRATIVE: CASE EVENT DATE: 19620704
